FAERS Safety Report 8244790-9 (Version None)
Quarter: 2012Q1

REPORT INFORMATION
  Report Type: 
  Country: None (occurrence: None)
  Receive Date: 20120329
  Receipt Date: 20110418
  Transmission Date: 20120608
  Serious: No
  Sender: FDA-Public Use
  Company Number: US-MYLANLABS-2011S1007680

PATIENT
  Sex: Male

DRUGS (4)
  1. FENTANYL-100 [Suspect]
     Indication: PAIN
     Dosage: Q3D
     Route: 062
     Dates: start: 20100101, end: 20110409
  2. ASKINA DERM FILM DRESSING [Suspect]
     Dosage: Q3D
     Route: 062
  3. OXYCODONE HCL [Concomitant]
     Indication: BREAKTHROUGH PAIN
     Route: 048
  4. VALIUM [Concomitant]
     Indication: INSOMNIA
     Route: 048

REACTIONS (4)
  - FATIGUE [None]
  - OVERDOSE [None]
  - APPLICATION SITE ERYTHEMA [None]
  - DYSGEUSIA [None]
